FAERS Safety Report 16550869 (Version 1)
Quarter: 2019Q3

REPORT INFORMATION
  Report Type: Spontaneous
  Country: US (occurrence: US)
  Receive Date: 20190710
  Receipt Date: 20190710
  Transmission Date: 20191004
  Serious: Yes (Death)
  Sender: FDA-Public Use
  Company Number: US-ROCHE-2351365

PATIENT
  Sex: Female
  Weight: 145 kg

DRUGS (2)
  1. RITUXAN [Suspect]
     Active Substance: RITUXIMAB
     Indication: CHRONIC LYMPHOCYTIC LEUKAEMIA
     Dosage: ADMINISTER 375MG/M 58;
     Route: 042
     Dates: start: 20180430
  2. RITUXAN [Suspect]
     Active Substance: RITUXIMAB
     Dosage: ADMINISTER 375MG/M 58;
     Route: 042
     Dates: start: 20180430

REACTIONS (1)
  - Death [Fatal]
